FAERS Safety Report 8063452-4 (Version None)
Quarter: 2012Q1

REPORT INFORMATION
  Report Type: 
  Country: None (occurrence: None)
  Receive Date: 20120123
  Receipt Date: 20120116
  Transmission Date: 20120608
  Serious: Yes (Other)
  Sender: FDA-Public Use
  Company Number: PHHY2011JP112836

PATIENT
  Age: 68 Year
  Sex: Female
  Weight: 55.7 kg

DRUGS (8)
  1. MIGLITOL [Concomitant]
  2. ADALAT [Concomitant]
  3. RABEPRAZOLE SODIUM [Concomitant]
  4. AMARYL [Concomitant]
  5. METFORMIN HCL [Concomitant]
  6. ZOMETA [Suspect]
     Indication: OSTEOPOROSIS PROPHYLAXIS
     Dosage: 4 MG,
     Route: 041
     Dates: start: 20111222
  7. BISOPROLOL FUMARATE [Concomitant]
  8. OLMESARTAN MEDOXOMIL [Concomitant]

REACTIONS (8)
  - CARDIAC FAILURE CONGESTIVE [None]
  - DYSPNOEA [None]
  - CARDIAC FAILURE [None]
  - VERTIGO [None]
  - MUSCULOSKELETAL PAIN [None]
  - INFECTION [None]
  - ANGIOSCLEROSIS [None]
  - PYREXIA [None]
